FAERS Safety Report 8605927-2 (Version None)
Quarter: 2012Q3

REPORT INFORMATION
  Report Type: 
  Country: None (occurrence: None)
  Receive Date: 20120820
  Receipt Date: 20120814
  Transmission Date: 20120928
  Serious: No
  Sender: FDA-Public Use
  Company Number: US-B.I. PHARMACEUTICALS,INC./RIDGEFIELD-2012-BP-19276BP

PATIENT
  Sex: Male

DRUGS (5)
  1. SPIRIVA [Suspect]
     Indication: CHRONIC OBSTRUCTIVE PULMONARY DISEASE
     Dosage: 18 MCG
     Route: 055
     Dates: start: 20120301
  2. FINASTERIDE [Concomitant]
     Indication: PROSTATOMEGALY
     Route: 048
  3. ASPIRIN [Concomitant]
     Indication: PROPHYLAXIS
     Dosage: 325 MG
     Route: 048
  4. DOXAZOSIN MESYLATE [Concomitant]
     Indication: PROSTATOMEGALY
     Route: 048
  5. LOVASTATIN [Concomitant]
     Route: 048

REACTIONS (2)
  - DYSGEUSIA [None]
  - OESOPHAGEAL IRRITATION [None]
